FAERS Safety Report 9556319 (Version 1)
Quarter: 2013Q3

REPORT INFORMATION
  Report Type: Spontaneous
  Country: US (occurrence: None)
  Receive Date: 20130815
  Receipt Date: 20130815
  Transmission Date: 20140515
  Serious: Yes (Other)
  Sender: FDA-Public Use
  Company Number: ADR-2013-00421

PATIENT
  Sex: Female

DRUGS (5)
  1. BACLOFEN INTRATHECAL [Suspect]
     Indication: PAIN
  2. VACAINE [Concomitant]
  3. DILAUDID (HYDROMORPHONE) [Concomitant]
  4. MORPHINE [Concomitant]
  5. CLONIDINE INTRATHECAL [Concomitant]

REACTIONS (5)
  - Drug withdrawal syndrome [None]
  - Fall [None]
  - Granuloma [None]
  - Pain [None]
  - Implant site pain [None]
